FAERS Safety Report 4512972-5 (Version None)
Quarter: 2004Q4

REPORT INFORMATION
  Report Type: 
  Country: None (occurrence: None)
  Receive Date: 20041124
  Receipt Date: 20041124
  Transmission Date: 20050328
  Serious: Yes (Death)
  Sender: FDA-Public Use
  Company Number: None

PATIENT
  Age: 58 Year
  Sex: Female

DRUGS (1)
  1. PHENYTOIN [Suspect]

REACTIONS (9)
  - CARDIO-RESPIRATORY ARREST [None]
  - DERMATITIS BULLOUS [None]
  - DRUG LEVEL BELOW THERAPEUTIC [None]
  - GASTROINTESTINAL NECROSIS [None]
  - HYPOTENSION [None]
  - INTESTINAL INFARCTION [None]
  - RENAL FAILURE ACUTE [None]
  - STEVENS-JOHNSON SYNDROME [None]
  - TOXIC EPIDERMAL NECROLYSIS [None]
